FAERS Safety Report 7724311-7 (Version None)
Quarter: 2011Q3

REPORT INFORMATION
  Report Type: 
  Country: None (occurrence: None)
  Receive Date: 20110901
  Receipt Date: 20110825
  Transmission Date: 20111222
  Serious: Yes (Other)
  Sender: FDA-Public Use
  Company Number: NO-BAYER-2011-077102

PATIENT
  Sex: Female

DRUGS (1)
  1. MIRENA [Suspect]
     Dosage: UNK
     Route: 015
     Dates: start: 20110812, end: 20110819

REACTIONS (5)
  - URINARY TRACT INFECTION [None]
  - DYSURIA [None]
  - ABDOMINAL PAIN LOWER [None]
  - UTERINE CERVICAL EROSION [None]
  - POLLAKIURIA [None]
